FAERS Safety Report 5268726-8 (Version None)
Quarter: 2007Q1

REPORT INFORMATION
  Report Type: 
  Country: None (occurrence: None)
  Receive Date: 20070315
  Receipt Date: 20070315
  Transmission Date: 20070707
  Serious: No
  Sender: FDA-Public Use
  Company Number: None

PATIENT
  Sex: Female
  Weight: 68.0396 kg

DRUGS (5)
  1. AMBIEN [Suspect]
     Indication: INSOMNIA
     Dosage: 10 MG ONE AT BEDTIME PO
     Route: 048
     Dates: start: 20060207, end: 20070110
  2. PREGABALIN [Concomitant]
  3. DULOXETINE [Concomitant]
  4. SERTRALINE [Concomitant]
  5. CANDESARTAN [Concomitant]

REACTIONS (3)
  - ABNORMAL SLEEP-RELATED EVENT [None]
  - AMNESIA [None]
  - HYPERPHAGIA [None]
